FAERS Safety Report 24128857 (Version 1)
Quarter: 2024Q3

REPORT INFORMATION
  Report Type: Report from Study
  Country: US (occurrence: US)
  Receive Date: 20240723
  Receipt Date: 20240723
  Transmission Date: 20241017
  Serious: Yes (Hospitalization)
  Sender: TAKEDA
  Company Number: US-TAKEDA-ALL1-2011-05118

PATIENT
  Sex: Male

DRUGS (1)
  1. VELAGLUCERASE ALFA [Suspect]
     Active Substance: VELAGLUCERASE ALFA
     Indication: Gaucher^s disease
     Dosage: 3600 INTERNATIONAL UNIT, Q2WEEKS
     Route: 041
     Dates: start: 20100629

REACTIONS (4)
  - Hospitalisation [Unknown]
  - Exercise lack of [Unknown]
  - Arthritis [Unknown]
  - Weight increased [Unknown]

NARRATIVE: CASE EVENT DATE: 20110101
